FAERS Safety Report 10843194 (Version 1)
Quarter: 2015Q1

REPORT INFORMATION
  Report Type: Report from Study
  Country: US (occurrence: US)
  Receive Date: 20150220
  Receipt Date: 20150220
  Transmission Date: 20150721
  Serious: No
  Sender: FDA-Public Use
  Company Number: US-ABBVIE-14P-163-1282433-00

PATIENT
  Sex: Male

DRUGS (2)
  1. HUMIRA [Suspect]
     Active Substance: ADALIMUMAB
     Indication: ANKYLOSING SPONDYLITIS
     Route: 058
     Dates: start: 20110418
  2. HUMIRA [Suspect]
     Active Substance: ADALIMUMAB
     Route: 058

REACTIONS (10)
  - Musculoskeletal stiffness [Recovered/Resolved]
  - Nasopharyngitis [Unknown]
  - Dyspnoea [Unknown]
  - Dyspnoea [Recovered/Resolved]
  - Musculoskeletal stiffness [Unknown]
  - Skin wrinkling [Recovered/Resolved]
  - Myalgia [Recovered/Resolved]
  - Skin wrinkling [Unknown]
  - Nasopharyngitis [Recovered/Resolved]
  - Myalgia [Unknown]
